FAERS Safety Report 17014878 (Version 8)
Quarter: 2021Q1

REPORT INFORMATION
  Report Type: Report from Study
  Country: None (occurrence: NL)
  Receive Date: 20191111
  Receipt Date: 20210107
  Transmission Date: 20210419
  Serious: Yes (Hospitalization, Other)
  Sender: FDA-Public Use
  Company Number: NL-ABBVIE-19S-114-2681621-00

PATIENT
  Age: 70 Year
  Sex: Male
  Weight: 83 kg

DRUGS (9)
  1. DUODOPA [Suspect]
     Active Substance: CARBIDOPA\LEVODOPA
     Dosage: MD: 6.0 ML, CD: 4.2 ML/HR, ED: 2.0 ML, REMAINED 16 HOURS.
     Route: 050
  2. RIVASTIGMINE. [Concomitant]
     Active Substance: RIVASTIGMINE
     Indication: PRODUCT USED FOR UNKNOWN INDICATION
  3. CLOZAPINE. [Concomitant]
     Active Substance: CLOZAPINE
     Indication: PRODUCT USED FOR UNKNOWN INDICATION
  4. OXYCODONE [Concomitant]
     Active Substance: OXYCODONE
     Indication: PRODUCT USED FOR UNKNOWN INDICATION
  5. SYMMETREL [Concomitant]
     Active Substance: AMANTADINE HYDROCHLORIDE
     Indication: PRODUCT USED FOR UNKNOWN INDICATION
  6. DUODOPA [Suspect]
     Active Substance: CARBIDOPA\LEVODOPA
     Indication: PARKINSON^S DISEASE
     Dosage: CD ADJUSTED 9.9ML BY ACCIDENT,LMD: 6.0, CD: 4.5, ED: 2.0 16 HOUR ADMINISTRATION
     Route: 050
     Dates: start: 20110303
  7. MOVICOLON [Concomitant]
     Active Substance: POLYETHYLENE GLYCOL 3350\POTASSIUM CHLORIDE\SODIUM BICARBONATE\SODIUM CHLORIDE
     Indication: ABNORMAL FAECES
  8. SINEMET PCH [Concomitant]
     Indication: PRODUCT USED FOR UNKNOWN INDICATION
  9. SINEMET CR [Concomitant]
     Active Substance: CARBIDOPA\LEVODOPA
     Indication: PRODUCT USED FOR UNKNOWN INDICATION
     Dosage: 1 TIMES 3 TABLETS

REACTIONS (32)
  - Chorea [Recovered/Resolved]
  - Dyskinesia [Recovered/Resolved]
  - Nerve compression [Not Recovered/Not Resolved]
  - Spinal fracture [Not Recovered/Not Resolved]
  - Wrong dose [Not Recovered/Not Resolved]
  - Mobility decreased [Not Recovered/Not Resolved]
  - Impaired quality of life [Not Recovered/Not Resolved]
  - On and off phenomenon [Recovering/Resolving]
  - Bradykinesia [Not Recovered/Not Resolved]
  - Pain [Not Recovered/Not Resolved]
  - Muscle rigidity [Not Recovered/Not Resolved]
  - Tremor [Not Recovered/Not Resolved]
  - Fatigue [Not Recovered/Not Resolved]
  - Somnolence [Not Recovered/Not Resolved]
  - Memory impairment [Recovered/Resolved]
  - Bowel movement irregularity [Recovered/Resolved]
  - Middle insomnia [Not Recovered/Not Resolved]
  - Anaemia [Unknown]
  - Freezing phenomenon [Not Recovered/Not Resolved]
  - Hernia [Not Recovered/Not Resolved]
  - Motor dysfunction [Not Recovered/Not Resolved]
  - Weight increased [Recovered/Resolved]
  - Delirium [Not Recovered/Not Resolved]
  - Pain in extremity [Unknown]
  - Hypoaesthesia [Not Recovered/Not Resolved]
  - Hallucination [Recovered/Resolved]
  - Fibroma [Not Recovered/Not Resolved]
  - Speech disorder [Not Recovered/Not Resolved]
  - Wrong technique in product usage process [Unknown]
  - Fall [Not Recovered/Not Resolved]
  - Hyperkinesia [Not Recovered/Not Resolved]
  - Stoma site discharge [Recovered/Resolved]

NARRATIVE: CASE EVENT DATE: 201802
